FAERS Safety Report 10495751 (Version 1)
Quarter: 2014Q3

REPORT INFORMATION
  Report Type: Spontaneous
  Country: US (occurrence: None)
  Receive Date: 20140815
  Receipt Date: 20140815
  Transmission Date: 20150326
  Serious: Yes (Hospitalization, Other)
  Sender: FDA-Public Use
  Company Number: ADR-2013-02301

PATIENT
  Age: 58 Year
  Sex: Female

DRUGS (2)
  1. BACLOFEN. [Suspect]
     Active Substance: BACLOFEN
     Indication: PAIN
  2. MORPHINE [Suspect]
     Active Substance: MORPHINE

REACTIONS (8)
  - Pyrexia [None]
  - Nausea [None]
  - Wound dehiscence [None]
  - Implant site discharge [None]
  - Drug withdrawal syndrome [None]
  - Pain [None]
  - Vomiting [None]
  - Implant site infection [None]
